FAERS Safety Report 15715428 (Version 1)
Quarter: 2018Q4

REPORT INFORMATION
  Report Type: Report from Study
  Country: US (occurrence: US)
  Receive Date: 20181212
  Receipt Date: 20181212
  Transmission Date: 20190205
  Serious: Yes (Death, Hospitalization)
  Sender: FDA-Public Use
  Company Number: US-ASTRAZENECA-2018SF59828

PATIENT
  Age: 882 Month
  Sex: Female

DRUGS (2)
  1. LYNPARZA [Suspect]
     Active Substance: OLAPARIB
     Indication: VULVAL CANCER METASTATIC
     Route: 048
     Dates: start: 201809
  2. LYNPARZA [Suspect]
     Active Substance: OLAPARIB
     Indication: VULVAL CANCER METASTATIC
     Dosage: 2 TABLETS IN THE MORNING AND 2 AT NIGHT
     Route: 048

REACTIONS (10)
  - Thrombocytopenia [Fatal]
  - Feeling abnormal [Unknown]
  - Off label use [Unknown]
  - Staphylococcal infection [Fatal]
  - Malnutrition [Fatal]
  - Asthenia [Unknown]
  - Staphylococcal sepsis [Fatal]
  - Hypophagia [Unknown]
  - Product use in unapproved indication [Unknown]
  - Malaise [Unknown]

NARRATIVE: CASE EVENT DATE: 201809
